FAERS Safety Report 4294256-6 (Version None)
Quarter: 2004Q1

REPORT INFORMATION
  Report Type: 
  Country: None (occurrence: None)
  Receive Date: 20040211
  Receipt Date: 20030725
  Transmission Date: 20041129
  Serious: No
  Sender: FDA-Public Use
  Company Number: US-GLAXOSMITHKLINE-A0418831A

PATIENT
  Sex: Female

DRUGS (7)
  1. LAMICTAL [Suspect]
     Dosage: 25MG PER DAY
     Route: 048
     Dates: end: 20030724
  2. TRAZODONE HCL [Concomitant]
  3. FLORINEF [Concomitant]
  4. NEURONTIN [Concomitant]
  5. PROTONIX [Concomitant]
  6. PROVIGIL [Concomitant]
  7. PROZAC [Concomitant]

REACTIONS (2)
  - PRURITUS [None]
  - RASH [None]
